FAERS Safety Report 18604663 (Version 1)
Quarter: 2020Q4

REPORT INFORMATION
  Report Type: Spontaneous
  Country: US (occurrence: US)
  Receive Date: 20201211
  Receipt Date: 20201211
  Transmission Date: 20210114
  Serious: No
  Sender: FDA-Public Use
  Company Number: None

PATIENT
  Age: 51 Year
  Sex: Male
  Weight: 107.05 kg

DRUGS (1)
  1. BOTOX [Suspect]
     Active Substance: ONABOTULINUMTOXINA
     Indication: MULTIPLE SCLEROSIS
     Dosage: ?          OTHER STRENGTH:200 UNITS;OTHER DOSE:200 UNITS;OTHER FREQUENCY:EVERY 3 MONTHS;?
     Route: 058
     Dates: start: 202003

REACTIONS (1)
  - COVID-19 [None]
